FAERS Safety Report 7312614-X (Version None)
Quarter: 2011Q1

REPORT INFORMATION
  Report Type: 
  Country: None (occurrence: None)
  Receive Date: 20110224
  Receipt Date: 20101202
  Transmission Date: 20110831
  Serious: No
  Sender: FDA-Public Use
  Company Number: US-MYLANLABS-2010S1019595

PATIENT
  Age: 67 Year
  Sex: Male
  Weight: 88.45 kg

DRUGS (10)
  1. ATENOLOL [Suspect]
     Indication: BLOOD PRESSURE INCREASED
     Route: 048
     Dates: start: 20101016, end: 20101019
  2. ATENOLOL [Suspect]
     Route: 048
     Dates: start: 20101021, end: 20101024
  3. ASPIRIN [Concomitant]
     Route: 048
  4. ATENOLOL [Suspect]
     Indication: VENTRICULAR EXTRASYSTOLES
     Route: 048
     Dates: start: 20101016, end: 20101019
  5. ATENOLOL [Suspect]
     Indication: ARRHYTHMIA
     Route: 048
     Dates: start: 20101016, end: 20101019
  6. ATENOLOL [Suspect]
     Route: 048
     Dates: start: 20101020, end: 20101020
  7. ATENOLOL [Suspect]
     Route: 048
     Dates: start: 20101020, end: 20101020
  8. ATENOLOL [Suspect]
     Route: 048
     Dates: start: 20101020, end: 20101020
  9. ATENOLOL [Suspect]
     Route: 048
     Dates: start: 20101021, end: 20101024
  10. ATENOLOL [Suspect]
     Route: 048
     Dates: start: 20101021, end: 20101024

REACTIONS (8)
  - DRUG INEFFECTIVE [None]
  - BLOOD PRESSURE INCREASED [None]
  - HEART RATE INCREASED [None]
  - VENTRICULAR EXTRASYSTOLES [None]
  - ATRIAL FIBRILLATION [None]
  - FEELING ABNORMAL [None]
  - HEADACHE [None]
  - BLOOD PRESSURE FLUCTUATION [None]
